FAERS Safety Report 6458255-8 (Version None)
Quarter: 2009Q4

REPORT INFORMATION
  Report Type: 
  Country: None (occurrence: None)
  Receive Date: 20091125
  Receipt Date: 20091116
  Transmission Date: 20100525
  Serious: Yes (Hospitalization)
  Sender: FDA-Public Use
  Company Number: US-AMGEN-US375106

PATIENT
  Age: 72 Year
  Sex: Male
  Weight: 90.9 kg

DRUGS (3)
  1. PANITUMUMAB [Suspect]
     Indication: PANCREATIC CARCINOMA
     Route: 065
     Dates: start: 20091005
  2. XELODA [Suspect]
     Route: 065
     Dates: start: 20091005
  3. RADIATION THERAPY [Suspect]
     Route: 065
     Dates: start: 20091005

REACTIONS (4)
  - DECREASED APPETITE [None]
  - DEHYDRATION [None]
  - DYSPNOEA [None]
  - PULMONARY EMBOLISM [None]
